FAERS Safety Report 9387801 (Version 1)
Quarter: 2013Q3

REPORT INFORMATION
  Report Type: Spontaneous
  Country: FR (occurrence: None)
  Receive Date: 20130703
  Receipt Date: 20130703
  Transmission Date: 20140515
  Serious: Yes (Hospitalization)
  Sender: FDA-Public Use
  Company Number: TPA2013A06211

PATIENT
  Age: 70 Year
  Sex: Female

DRUGS (8)
  1. ADENURIC (FEBUXOSTAT) [Suspect]
     Indication: HYPERURICAEMIA
     Route: 048
     Dates: start: 20130326
  2. EUPANTOL [Suspect]
     Indication: PRODUCT USED FOR UNKNOWN INDICATION
     Route: 048
  3. AVLOCARDYL [Suspect]
     Indication: PRODUCT USED FOR UNKNOWN INDICATION
     Route: 048
     Dates: start: 20130326, end: 201305
  4. VITAMINE B12 AQUETTANT [Concomitant]
  5. VITAMINE B6 [Concomitant]
  6. CACIT D3 [Concomitant]
  7. ALPRAZOLAM (ALPRAZOLAM) [Concomitant]
  8. MACROGOL [Concomitant]

REACTIONS (4)
  - Electrocardiogram QT prolonged [None]
  - Electrocardiogram PR shortened [None]
  - Tachycardia [None]
  - Hepatocellular injury [None]
